FAERS Safety Report 8373136-0 (Version None)
Quarter: 2012Q2

REPORT INFORMATION
  Report Type: 
  Country: None (occurrence: None)
  Receive Date: 20120521
  Receipt Date: 20120515
  Transmission Date: 20120825
  Serious: Yes (Other)
  Sender: FDA-Public Use
  Company Number: BR-PFIZER INC-2011157042

PATIENT
  Age: 41 Year
  Sex: Male
  Weight: 74 kg

DRUGS (4)
  1. VARENICLINE TARTRATE [Suspect]
     Dosage: UNK, 1X/DAY
     Route: 048
     Dates: start: 20110801, end: 20110101
  2. CLONAZEPAM [Concomitant]
     Indication: SMOKING CESSATION THERAPY
     Dosage: UNK, AS NEEDED
  3. VARENICLINE TARTRATE [Suspect]
     Dosage: 1 MG, 2X/DAY
     Route: 048
     Dates: start: 20110101, end: 20110101
  4. VARENICLINE TARTRATE [Suspect]
     Indication: SMOKING CESSATION THERAPY
     Dosage: UNK
     Route: 048
     Dates: start: 20110409, end: 20110101

REACTIONS (5)
  - ANXIETY [None]
  - WITHDRAWAL SYNDROME [None]
  - DEPRESSION [None]
  - AFFECT LABILITY [None]
  - ABDOMINAL PAIN UPPER [None]
